FAERS Safety Report 16777403 (Version 1)
Quarter: 2019Q3

REPORT INFORMATION
  Report Type: Spontaneous
  Country: NL (occurrence: FR)
  Receive Date: 20190905
  Receipt Date: 20190905
  Transmission Date: 20191005
  Serious: Yes (Other)
  Sender: FDA-Public Use
  Company Number: FR-FRESENIUS KABI-FK201909450

PATIENT
  Age: 14 Year
  Sex: Female

DRUGS (12)
  1. SODIUM CHLORIDE. [Suspect]
     Active Substance: SODIUM CHLORIDE
     Indication: HAEMOPERFUSION
     Dosage: 1 DF, TOTAL?BAXTER
     Route: 042
     Dates: start: 20120625, end: 20120625
  2. SULFAMETHOXAZOLE/TRIMETHOPRIM [Concomitant]
     Dosage: MONDAY. WEDNESDAY AND THURSDAY
  3. PRAVASTATIN SODIUM. [Concomitant]
     Active Substance: PRAVASTATIN SODIUM
     Dosage: UNK
  4. SODIUM BICARBONATE. [Concomitant]
     Active Substance: SODIUM BICARBONATE
     Dosage: 2 G, QD
  5. SODIUM CHLORIDE (MANUFACTURER UNKNOWN) [Suspect]
     Active Substance: SODIUM CHLORIDE
     Indication: HAEMOPERFUSION
     Dosage: 1 DF, TOTAL
     Route: 042
     Dates: start: 20120625, end: 20120625
  6. HEPARIN SODIUM. [Suspect]
     Active Substance: HEPARIN SODIUM
     Indication: HAEMOPERFUSION
     Dosage: 1 DF, TOTAL
     Route: 042
     Dates: start: 20120625, end: 20120625
  7. TACROLIMUS. [Concomitant]
     Active Substance: TACROLIMUS
     Dosage: 3 MG, QD
  8. FLUTICASONE PROPIONATE/SALMETEROL XINAFOATE [Concomitant]
     Dosage: MORNING AND EVENING
  9. HYDROCORTISONE. [Concomitant]
     Active Substance: HYDROCORTISONE
     Dosage: 7.5 MG IN MORNING AND 5 MG AT LUNCH
  10. CALCIUM CHLORIDE. [Suspect]
     Active Substance: CALCIUM CHLORIDE
     Indication: HAEMOPERFUSION
     Dosage: 1 DF, TOTAL
     Route: 042
     Dates: start: 20120625, end: 20120625
  11. ENALAPRIL MALEATE. [Concomitant]
     Active Substance: ENALAPRIL MALEATE
     Dosage: 10 MG,QD
  12. ESOMEPRAZOLE MAGNESIUM. [Concomitant]
     Active Substance: ESOMEPRAZOLE MAGNESIUM
     Dosage: 20 MG,QD

REACTIONS (1)
  - Anaphylactic shock [Recovered/Resolved]

NARRATIVE: CASE EVENT DATE: 20120625
